FAERS Safety Report 10236709 (Version 1)
Quarter: 2014Q2

REPORT INFORMATION
  Report Type: Spontaneous
  Country: US (occurrence: US)
  Receive Date: 20140613
  Receipt Date: 20140613
  Transmission Date: 20141212
  Serious: Yes (Hospitalization)
  Sender: FDA-Public Use
  Company Number: US-ELI_LILLY_AND_COMPANY-US201406001486

PATIENT
  Sex: Female

DRUGS (1)
  1. HUMALOG LISPRO [Suspect]
     Indication: TYPE 1 DIABETES MELLITUS
     Dosage: 12 U, TID
     Route: 065
     Dates: start: 2004

REACTIONS (4)
  - Blood glucose increased [Unknown]
  - Syncope [Unknown]
  - Blood glucose increased [Unknown]
  - Drug ineffective [Unknown]
